FAERS Safety Report 9159499 (Version 1)
Quarter: 2013Q1

REPORT INFORMATION
  Report Type: Spontaneous
  Country: US (occurrence: None)
  Receive Date: 20130212
  Receipt Date: 20130212
  Transmission Date: 20140127
  Serious: Yes (Other)
  Sender: FDA-Public Use
  Company Number: ACO_34034_2013

PATIENT
  Age: 50 Year
  Sex: Female
  Weight: 56.2 kg

DRUGS (7)
  1. AMPYRA (DALFAMPRIDINE) TABLET, 10MG [Suspect]
     Route: 048
     Dates: start: 201108, end: 2011
  2. COPAXONE (GLATIRAMER ACETATE) [Concomitant]
  3. GABAPENTIN (GABAPENTIN) [Concomitant]
  4. CYMBALTA (DULOXETINE HYDROCHLORIDE) [Concomitant]
  5. KLONOPIN (CLONAZEPAM) [Concomitant]
  6. CYCLOBENZAPRINE (CYCLOBENZAPRINE HYDROCHLORIDE) [Concomitant]
  7. ZOLPIDEM (ZOLPIDEM TARTRATE) [Concomitant]

REACTIONS (3)
  - Upper limb fracture [None]
  - Fall [None]
  - Vomiting [None]
